FAERS Safety Report 19601698 (Version 1)
Quarter: 2021Q3

REPORT INFORMATION
  Report Type: Spontaneous
  Country: GB (occurrence: GB)
  Receive Date: 20210723
  Receipt Date: 20210723
  Transmission Date: 20211014
  Serious: Yes (Life-Threatening, Hospitalization, Other)
  Sender: FDA-Public Use
  Company Number: GB-INVENTIA-000508

PATIENT
  Age: 58 Year
  Sex: Female

DRUGS (4)
  1. DICLOFENAC [Concomitant]
     Active Substance: DICLOFENAC
     Indication: ABDOMINAL PAIN
     Dosage: CONTINUED TO TAKE HER MEDICATION
  2. METFORMIN [Suspect]
     Active Substance: METFORMIN HYDROCHLORIDE
     Indication: TYPE 2 DIABETES MELLITUS
     Dosage: TWICE DAILY, CONTINUED TO TAKE HER MEDICATION
  3. GLICLAZIDE [Concomitant]
     Active Substance: GLICLAZIDE
     Indication: TYPE 2 DIABETES MELLITUS
     Dosage: CONTINUED TO TAKE HER MEDICATION
  4. RAMIPRIL. [Concomitant]
     Active Substance: RAMIPRIL
     Indication: HYPERTENSION
     Dosage: CONTINUED TO TAKE HER MEDICATION

REACTIONS (4)
  - Acute kidney injury [Unknown]
  - Cardiac arrest [Unknown]
  - Lactic acidosis [Recovered/Resolved]
  - Cardiovascular disorder [Unknown]
